FAERS Safety Report 7796979-0 (Version None)
Quarter: 2011Q4

REPORT INFORMATION
  Report Type: 
  Country: None (occurrence: None)
  Receive Date: 20111005
  Receipt Date: 20111005
  Transmission Date: 20120403
  Serious: Yes (Hospitalization)
  Sender: FDA-Public Use
  Company Number: None

PATIENT
  Age: 45 Year
  Sex: Male
  Weight: 79.378 kg

DRUGS (1)
  1. CLINDAMYCIN HCL [Suspect]
     Indication: PREOPERATIVE CARE
     Dosage: ONE CAPSULE
     Route: 048
     Dates: start: 20110920, end: 20110926

REACTIONS (8)
  - PYREXIA [None]
  - PAIN [None]
  - DIARRHOEA [None]
  - CLOSTRIDIAL INFECTION [None]
  - CHILLS [None]
  - PRURITUS [None]
  - PALPITATIONS [None]
  - MUSCLE SPASMS [None]
